FAERS Safety Report 6028884-4 (Version None)
Quarter: 2009Q1

REPORT INFORMATION
  Report Type: 
  Country: None (occurrence: None)
  Receive Date: 20090105
  Receipt Date: 20090105
  Transmission Date: 20090719
  Serious: Yes (Hospitalization)
  Sender: FDA-Public Use
  Company Number: None

PATIENT
  Age: 87 Year
  Sex: Female
  Weight: 69.4 kg

DRUGS (2)
  1. AMPICILLIN [Suspect]
     Dosage: 1 GM TID IV
     Route: 042
     Dates: start: 20081006, end: 20081007
  2. CEFTAZIDIME [Suspect]
     Dosage: 1 GM BID IV
     Route: 042
     Dates: start: 20081004, end: 20081006

REACTIONS (2)
  - ERYTHEMA MULTIFORME [None]
  - PYREXIA [None]
